FAERS Safety Report 8592611-7 (Version None)
Quarter: 2012Q3

REPORT INFORMATION
  Report Type: 
  Country: None (occurrence: None)
  Receive Date: 20120814
  Receipt Date: 20120806
  Transmission Date: 20120928
  Serious: Yes (Hospitalization)
  Sender: FDA-Public Use
  Company Number: US-ACTELION-A-US2012-67976

PATIENT
  Age: 75 Year
  Sex: Female

DRUGS (6)
  1. FUROSEMIDE [Concomitant]
  2. OXYGEN [Concomitant]
  3. DIGOXIN [Concomitant]
  4. TRACLEER [Suspect]
     Indication: PULMONARY ARTERIAL HYPERTENSION
     Dosage: UNK
     Route: 048
     Dates: start: 20030206
  5. SPIRONOLACTONE [Concomitant]
  6. REMODULIN [Concomitant]

REACTIONS (2)
  - DEVICE RELATED INFECTION [None]
  - MEDICAL DEVICE COMPLICATION [None]
